FAERS Safety Report 14610309 (Version 3)
Quarter: 2018Q1

REPORT INFORMATION
  Report Type: Spontaneous
  Country: US (occurrence: US)
  Receive Date: 20180307
  Receipt Date: 20180321
  Transmission Date: 20180509
  Serious: Yes (Other)
  Sender: FDA-Public Use
  Company Number: US-PFIZER INC-2018090782

PATIENT
  Age: 75 Year
  Sex: Female

DRUGS (1)
  1. EPINEPHRINE. [Suspect]
     Active Substance: EPINEPHRINE
     Indication: RECTAL HAEMORRHAGE
     Dosage: 3.5 ML, UNK

REACTIONS (1)
  - Ventricular tachycardia [Unknown]
